FAERS Safety Report 7072492-3 (Version None)
Quarter: 2010Q4

REPORT INFORMATION
  Report Type: 
  Country: None (occurrence: None)
  Receive Date: 20101029
  Receipt Date: 20100304
  Transmission Date: 20110411
  Serious: No
  Sender: FDA-Public Use
  Company Number: A0842813A

PATIENT
  Age: 56 Year
  Sex: Female
  Weight: 42.5 kg

DRUGS (7)
  1. ADVAIR DISKUS 100/50 [Suspect]
     Indication: CHRONIC OBSTRUCTIVE PULMONARY DISEASE
     Dosage: 1PUFF TWICE PER DAY
     Route: 055
     Dates: start: 20100127
  2. COMBIVENT [Concomitant]
  3. KLOR-CON [Concomitant]
  4. HYDROCHLOROTHIAZIDE [Concomitant]
  5. PAXIL [Concomitant]
  6. SINGULAIR [Concomitant]
  7. MULTI-VITAMIN [Concomitant]

REACTIONS (2)
  - MUSCLE SPASMS [None]
  - PAIN IN EXTREMITY [None]
